FAERS Safety Report 4354791-9 (Version None)
Quarter: 2004Q2

REPORT INFORMATION
  Report Type: 
  Country: None (occurrence: None)
  Receive Date: 20040507
  Receipt Date: 20040412
  Transmission Date: 20050107
  Serious: Yes (Hospitalization)
  Sender: FDA-Public Use
  Company Number: US-MERCK-0404USA01209

PATIENT
  Age: 70 Year
  Sex: Female

DRUGS (6)
  1. [THERAPY UNSPECIFIED] [Concomitant]
     Route: 065
  2. TUMS [Concomitant]
     Route: 065
  3. IMODIUM [Concomitant]
     Route: 065
  4. NYSTATIN USP (PADDOCK) [Concomitant]
     Route: 065
  5. VIOXX [Suspect]
     Route: 048
  6. TIGAN [Concomitant]
     Route: 065

REACTIONS (2)
  - DYSPNOEA [None]
  - SWOLLEN TONGUE [None]
